FAERS Safety Report 5406232-8 (Version None)
Quarter: 2007Q3

REPORT INFORMATION
  Report Type: 
  Country: None (occurrence: None)
  Receive Date: 20070802
  Receipt Date: 20070802
  Transmission Date: 20080115
  Serious: Yes (Hospitalization)
  Sender: FDA-Public Use
  Company Number: None

PATIENT
  Age: 14 Year
  Sex: Female
  Weight: 63.5036 kg

DRUGS (1)
  1. MINOCYCLINE HCL [Suspect]
     Indication: ACNE
     Dosage: 100MG BID PO
     Route: 048
     Dates: start: 20070601, end: 20070720

REACTIONS (2)
  - BACK PAIN [None]
  - BENIGN INTRACRANIAL HYPERTENSION [None]
